FAERS Safety Report 19278943 (Version 3)
Quarter: 2022Q2

REPORT INFORMATION
  Report Type: Report from Study
  Country: CO (occurrence: CO)
  Receive Date: 20210520
  Receipt Date: 20220407
  Transmission Date: 20220721
  Serious: Yes (Other)
  Sender: FDA-Public Use
  Company Number: CO-NOVARTISPH-PHHY2018CO115043

PATIENT
  Sex: Male
  Weight: 67 kg

DRUGS (3)
  1. VOTRIENT [Suspect]
     Active Substance: PAZOPANIB HYDROCHLORIDE
     Indication: Metastatic renal cell carcinoma
     Dosage: 600 MG, QD
     Route: 048
     Dates: start: 20180709
  2. VOTRIENT [Suspect]
     Active Substance: PAZOPANIB HYDROCHLORIDE
     Dosage: 400 MG, QD
     Route: 048
  3. VOTRIENT [Suspect]
     Active Substance: PAZOPANIB HYDROCHLORIDE
     Dosage: 400 MG, QD
     Route: 048

REACTIONS (12)
  - Neoplasm malignant [Unknown]
  - Metastases to lung [Unknown]
  - Abdominal pain [Unknown]
  - Vomiting [Unknown]
  - Diarrhoea [Unknown]
  - Discouragement [Unknown]
  - Malaise [Unknown]
  - Renal mass [Unknown]
  - Feeling abnormal [Unknown]
  - Decreased appetite [Unknown]
  - White blood cell count decreased [Unknown]
  - Product dose omission issue [Unknown]
